FAERS Safety Report 6198452-2 (Version None)
Quarter: 2009Q2

REPORT INFORMATION
  Report Type: 
  Country: None (occurrence: None)
  Receive Date: 20090518
  Receipt Date: 20090511
  Transmission Date: 20091009
  Serious: Yes (Other)
  Sender: FDA-Public Use
  Company Number: CHPA2009US11423

PATIENT
  Sex: Male

DRUGS (3)
  1. EXCEDRIN (MIGRAINE) [Suspect]
     Dosage: ORAL
     Route: 048
     Dates: start: 20090501, end: 20090504
  2. ANTI-SMOKING AGENTS (NO INGREDIENTS/SUBSTANCES) [Suspect]
     Dosage: TRANSDERMAL
     Route: 062
  3. COCAINE (COCAINE) [Suspect]

REACTIONS (2)
  - LOSS OF CONSCIOUSNESS [None]
  - SWELLING FACE [None]
